FAERS Safety Report 21692988 (Version 1)
Quarter: 2022Q4

REPORT INFORMATION
  Report Type: Spontaneous
  Country: PL (occurrence: PL)
  Receive Date: 20221207
  Receipt Date: 20221207
  Transmission Date: 20230112
  Serious: Yes (Life-Threatening, Hospitalization)
  Sender: FDA-Public Use
  Company Number: None

PATIENT
  Age: 36 Year
  Sex: Female

DRUGS (5)
  1. ARIPIPRAZOLE [Suspect]
     Active Substance: ARIPIPRAZOLE
     Indication: Schizophrenia
     Dates: start: 201803
  2. QUETIAPINE [Suspect]
     Active Substance: QUETIAPINE
     Indication: Schizophrenia
  3. RISPERIDONE [Suspect]
     Active Substance: RISPERIDONE
     Indication: Schizophrenia
     Dosage: 50 MG EVERY 2 WEEKS
  4. VENLAFAXINE [Concomitant]
     Active Substance: VENLAFAXINE HYDROCHLORIDE
     Indication: Schizophrenia
  5. TRAZODONE HYDROCHLORIDE [Concomitant]
     Active Substance: TRAZODONE HYDROCHLORIDE
     Indication: Schizophrenia
     Dosage: PREVIOUSLY USED DOSE OF 300 BUT DECREASED TO 100

REACTIONS (11)
  - Sinus tachycardia [Unknown]
  - Inflammatory marker increased [Unknown]
  - Meningism [Unknown]
  - Suicide attempt [Unknown]
  - Pyrexia [Unknown]
  - Altered state of consciousness [Unknown]
  - Electrocardiogram QT prolonged [Unknown]
  - Hypertonia [Unknown]
  - Tremor [Unknown]
  - Fibrin D dimer increased [Unknown]
  - Blood creatine phosphokinase increased [Unknown]
